FAERS Safety Report 5383231-6 (Version None)
Quarter: 2007Q3

REPORT INFORMATION
  Report Type: 
  Country: None (occurrence: None)
  Receive Date: 20070710
  Receipt Date: 20070627
  Transmission Date: 20080115
  Serious: Yes (Life-Threatening, Hospitalization, Disabling)
  Sender: FDA-Public Use
  Company Number: SE-ELI_LILLY_AND_COMPANY-SE200706001992

PATIENT
  Age: 86 Year
  Sex: Female

DRUGS (15)
  1. FORTEO [Suspect]
     Indication: OSTEOPOROSIS POSTMENOPAUSAL
     Dosage: 20 UG, DAILY (1/D)
     Route: 058
  2. FORTEO [Suspect]
     Dosage: 20 UG, DAILY (1/D)
     Route: 058
     Dates: start: 20070301
  3. TROMBYL [Concomitant]
     Dosage: 75 MG, EACH MORNING
     Route: 065
  4. PLENDIL [Concomitant]
     Dosage: 7.5 MG, EACH MORNING
     Route: 065
  5. SALURES [Concomitant]
     Dosage: 5 MG, EACH MORNING
     Route: 065
  6. KALCIPOS-D [Concomitant]
     Dosage: UNK UNK, EACH MORNING
     Route: 065
  7. ZOLPIDEM TARTRATE [Concomitant]
     Dosage: 10 MG, EACH EVENING
     Route: 065
  8. KININ [Concomitant]
     Dosage: 100 MG, EACH EVENING
     Route: 065
  9. SIFROL [Concomitant]
     Dosage: 0.09 MG, EACH EVENING
     Route: 065
  10. LEVAXIN [Concomitant]
     Dosage: 50 UG, 5/W
     Route: 065
  11. VAGIFEM [Concomitant]
     Dosage: 25 UG, WEEKLY (1/W)
     Route: 067
  12. DURAGESIC-100 [Concomitant]
     Dosage: 25 UG, EVERY THIRD DAY
     Route: 062
  13. GLUCOSAMIN                         /00943604/ [Concomitant]
     Dosage: 400 MG, 3/D
     Route: 065
  14. MORFIN [Concomitant]
     Dosage: 10 MG, 0.5-1 ML AS NEEDED
     Route: 058
  15. OXYNORM [Concomitant]
     Dosage: 5 MG, AS NEEDED
     Route: 065

REACTIONS (5)
  - ABDOMINAL DISTENSION [None]
  - FLANK PAIN [None]
  - GALLBLADDER DISORDER [None]
  - LYMPHOMA [None]
  - NIGHT SWEATS [None]
